FAERS Safety Report 7672322-2 (Version None)
Quarter: 2011Q3

REPORT INFORMATION
  Report Type: 
  Country: None (occurrence: None)
  Receive Date: 20110809
  Receipt Date: 20110804
  Transmission Date: 20111222
  Serious: Yes (Other)
  Sender: FDA-Public Use
  Company Number: CA-PFIZER INC-2011139931

PATIENT
  Age: 85 Year
  Sex: Female
  Weight: 53.968 kg

DRUGS (1)
  1. XALATAN [Suspect]
     Indication: GLAUCOMA
     Dosage: 1 GTT IN BOTH EYES, 2X/DAY, MORNING ANG EVENING
     Route: 047

REACTIONS (1)
  - VISUAL FIELD TESTS ABNORMAL [None]
